FAERS Safety Report 9720722 (Version 2)
Quarter: 2013Q4

REPORT INFORMATION
  Report Type: Spontaneous
  Country: FR (occurrence: FR)
  Receive Date: 20131129
  Receipt Date: 20131205
  Transmission Date: 20140711
  Serious: Yes (Hospitalization)
  Sender: FDA-Public Use
  Company Number: FR-009507513-1311FRA008979

PATIENT
  Age: 60 Year
  Sex: Male

DRUGS (15)
  1. TIENAM 500MG/500MG, POUDRE POUR PERFUSION [Suspect]
     Indication: PROSTATITIS
     Dosage: 1 DF, QID
     Route: 042
     Dates: start: 20130920, end: 20131026
  2. HEPARIN CALCIUM [Suspect]
     Dosage: UNK
     Route: 058
     Dates: end: 20130930
  3. LOVENOX [Suspect]
     Dosage: 6000 IU, BID
     Route: 058
     Dates: start: 20130930
  4. COUMADIN [Suspect]
     Indication: PROPHYLAXIS
     Dosage: 7 MG, QD
     Route: 048
  5. KARDEGIC [Suspect]
     Indication: CARDIOVASCULAR EVENT PROPHYLAXIS
     Dosage: 1 DF, QD
     Route: 048
  6. EPIVIR [Concomitant]
     Indication: HIV INFECTION
     Dosage: 300 MG, QAM
     Route: 048
  7. INTELENCE [Concomitant]
     Indication: HIV INFECTION
     Dosage: 200 MG, BID
     Route: 048
  8. PREZISTA [Concomitant]
     Indication: HIV INFECTION
     Dosage: 600 MG, BID
     Route: 048
  9. NORVIR [Concomitant]
     Indication: HIV INFECTION
     Dosage: 100 MG, BID
     Route: 048
  10. PRAVASTATIN SODIUM [Concomitant]
     Dosage: 20 MG, QPM
     Route: 048
  11. TRIATEC (RAMIPRIL) [Concomitant]
     Dosage: 5 MG, QAM
     Route: 048
  12. BISOCOR [Concomitant]
     Dosage: 5 MG, QAM
     Route: 048
  13. SPIRIVA [Concomitant]
     Indication: CHRONIC OBSTRUCTIVE PULMONARY DISEASE
     Dosage: 1 DF, QAM
     Route: 055
  14. BACTRIM [Concomitant]
     Dosage: 1 DF, QAM
     Route: 048
  15. TOPALGIC (TRAMADOL HYDROCHLORIDE) [Concomitant]
     Dosage: 6 DF, PRN
     Route: 048

REACTIONS (2)
  - Muscle haemorrhage [Not Recovered/Not Resolved]
  - Anaemia [Recovering/Resolving]
